FAERS Safety Report 7704203-X (Version None)
Quarter: 2011Q3

REPORT INFORMATION
  Report Type: 
  Country: None (occurrence: None)
  Receive Date: 20110823
  Receipt Date: 20110818
  Transmission Date: 20111222
  Serious: Yes (Hospitalization, Other)
  Sender: FDA-Public Use
  Company Number: BR-SANOFI-AVENTIS-2011SA053224

PATIENT
  Sex: Male
  Weight: 83 kg

DRUGS (7)
  1. ENALAPRIL MALEATE [Concomitant]
  2. AUTOPEN 24 [Suspect]
  3. METOPROLOL SUCCINATE [Concomitant]
  4. ATORVASTATIN [Concomitant]
  5. HUMALOG [Concomitant]
     Indication: TYPE 2 DIABETES MELLITUS
     Dosage: 4 IU UNITS BEFORE BREAKFAST, 4 IU BEFORE LUNCH, THEN 4 IU BEFORE DINNER.
  6. CENTRUM [Concomitant]
  7. LANTUS [Suspect]
     Indication: TYPE 2 DIABETES MELLITUS
     Route: 058

REACTIONS (3)
  - CORONARY ARTERY DISEASE [None]
  - PAIN [None]
  - FATIGUE [None]
